FAERS Safety Report 9353550 (Version 2)
Quarter: 2013Q4

REPORT INFORMATION
  Report Type: Spontaneous
  Country: US (occurrence: US)
  Receive Date: 20130618
  Receipt Date: 20131119
  Transmission Date: 20140711
  Serious: Yes (Other)
  Sender: FDA-Public Use
  Company Number: US-BAYER-2013-072645

PATIENT
  Age: 31 Year
  Sex: Female
  Weight: 70.3 kg

DRUGS (2)
  1. MIRENA [Suspect]
     Indication: CONTRACEPTION
     Dosage: 20 MCG/24HR, CONT
     Route: 015
     Dates: start: 200704, end: 200706
  2. SERTRALINE [Concomitant]
     Indication: PREMENSTRUAL SYNDROME
     Dosage: UNK
     Dates: start: 2000

REACTIONS (11)
  - Urinary tract infection [None]
  - Device dislocation [None]
  - Abdominal pain [None]
  - Cervicitis [None]
  - Depression [Recovered/Resolved]
  - Anxiety [None]
  - Scar [None]
  - Abortion spontaneous [None]
  - Depressed mood [Recovered/Resolved]
  - Emotional disorder [None]
  - Uterine infection [None]
